FAERS Safety Report 9241372 (Version 1)
Quarter: 2013Q1

REPORT INFORMATION
  Report Type: Spontaneous
  Country: US (occurrence: None)
  Receive Date: 20121113
  Receipt Date: 20121113
  Transmission Date: 20140127
  Serious: Yes (Hospitalization)
  Sender: FDA-Public Use
  Company Number: PHEH2012US000675

PATIENT
  Age: 81 Year
  Sex: Male

DRUGS (2)
  1. TRILEPTAL [Suspect]
     Dosage: UNK, UNK, UNK
     Dates: start: 200601, end: 201109
  2. TYSABRI [Suspect]
     Indication: MULTIPLE SCLEROSIS
     Dosage: 300MG, QM, INTRAVENEOUS
     Route: 042
     Dates: start: 201107

REACTIONS (3)
  - Hyponatraemia [None]
  - Chills [None]
  - Asthenia [None]
